FAERS Safety Report 24998053 (Version 2)
Quarter: 2025Q1

REPORT INFORMATION
  Report Type: Spontaneous
  Country: US (occurrence: US)
  Receive Date: 20250222
  Receipt Date: 20250322
  Transmission Date: 20250409
  Serious: No
  Sender: SANOFI AVENTIS
  Company Number: US-SA-2025SA044984

PATIENT
  Sex: Male
  Weight: 104.55 kg

DRUGS (10)
  1. DUPIXENT [Suspect]
     Active Substance: DUPILUMAB
     Indication: Dermatitis allergic
     Dosage: 300 MG, QOW
     Route: 058
  2. RIBOFLAVIN [Concomitant]
     Active Substance: RIBOFLAVIN
  3. SUMATRIPTAN SUCCINATE [Concomitant]
     Active Substance: SUMATRIPTAN SUCCINATE
  4. MAGNESIUM [Concomitant]
     Active Substance: MAGNESIUM
  5. IRON [Concomitant]
     Active Substance: IRON
  6. AZATHIOPRINE [Concomitant]
     Active Substance: AZATHIOPRINE
  7. LATANOPROST [Concomitant]
     Active Substance: LATANOPROST
  8. METHOCARBAMOL [Concomitant]
     Active Substance: METHOCARBAMOL
  9. MELOXICAM [Concomitant]
     Active Substance: MELOXICAM
  10. GABAPENTIN [Concomitant]
     Active Substance: GABAPENTIN

REACTIONS (4)
  - Seasonal allergy [Unknown]
  - Headache [Unknown]
  - Hypersensitivity [Unknown]
  - Pruritus [Unknown]
